FAERS Safety Report 18009892 (Version 5)
Quarter: 2021Q1

REPORT INFORMATION
  Report Type: Report from Study
  Country: None (occurrence: US)
  Receive Date: 20200711
  Receipt Date: 20210226
  Transmission Date: 20210419
  Serious: Yes (Hospitalization, Other)
  Sender: FDA-Public Use
  Company Number: US-ABBVIE-20K-163-3400163-00

PATIENT
  Sex: Male
  Weight: 113.5 kg

DRUGS (8)
  1. CLONAZEPAM. [Concomitant]
     Active Substance: CLONAZEPAM
     Indication: ANXIETY
  2. VITAMIN D [Concomitant]
     Active Substance: VITAMIN D NOS
     Indication: PRODUCT USED FOR UNKNOWN INDICATION
  3. RABEPRAZOLE [Concomitant]
     Active Substance: RABEPRAZOLE
     Indication: PRODUCT USED FOR UNKNOWN INDICATION
  4. HUMIRA [Suspect]
     Active Substance: ADALIMUMAB
     Indication: CROHN^S DISEASE
     Dosage: CITRATE FREE
     Route: 058
     Dates: start: 1999
  5. ELIQUIS [Suspect]
     Active Substance: APIXABAN
     Route: 065
     Dates: start: 202005
  6. ELIQUIS [Suspect]
     Active Substance: APIXABAN
     Indication: PULMONARY EMBOLISM
     Route: 065
     Dates: start: 202001
  7. AMITRIPTYLINE [Concomitant]
     Active Substance: AMITRIPTYLINE
     Indication: DEPRESSION
  8. QUETIAPINE. [Concomitant]
     Active Substance: QUETIAPINE
     Indication: PRODUCT USED FOR UNKNOWN INDICATION

REACTIONS (14)
  - Pulmonary embolism [Recovered/Resolved]
  - Lung disorder [Not Recovered/Not Resolved]
  - Chest discomfort [Unknown]
  - Neck pain [Not Recovered/Not Resolved]
  - Hypotension [Recovering/Resolving]
  - Pulmonary embolism [Recovered/Resolved]
  - Memory impairment [Not Recovered/Not Resolved]
  - Pulmonary embolism [Recovered/Resolved]
  - Dizziness [Not Recovered/Not Resolved]
  - Concussion [Recovering/Resolving]
  - Hypertension [Recovering/Resolving]
  - Epistaxis [Recovered/Resolved]
  - Contusion [Recovering/Resolving]
  - Vitamin D deficiency [Unknown]

NARRATIVE: CASE EVENT DATE: 2018
